FAERS Safety Report 12293360 (Version 2)
Quarter: 2016Q2

REPORT INFORMATION
  Report Type: Spontaneous
  Country: DE (occurrence: DE)
  Receive Date: 20160421
  Receipt Date: 20160506
  Transmission Date: 20160815
  Serious: Yes (Other)
  Sender: FDA-Public Use
  Company Number: DE-JNJFOC-20160419319

PATIENT
  Age: 72 Year
  Sex: Male
  Weight: 80 kg

DRUGS (7)
  1. DOXACOR [Concomitant]
     Dosage: 4 MG ONLY MORNING
     Route: 065
  2. XARELTO [Suspect]
     Active Substance: RIVAROXABAN
     Indication: CEREBROVASCULAR ACCIDENT PROPHYLAXIS
     Route: 048
     Dates: start: 201409, end: 20160125
  3. CANDESARTAN [Concomitant]
     Active Substance: CANDESARTAN
     Dosage: 16 MG ONLY MORNING
     Route: 065
  4. ATORVASTATIN [Concomitant]
     Active Substance: ATORVASTATIN
     Route: 065
  5. XARELTO [Suspect]
     Active Substance: RIVAROXABAN
     Indication: ATRIAL FIBRILLATION
     Route: 048
     Dates: start: 201409, end: 20160125
  6. METOPROLOL SUCCINATE. [Concomitant]
     Active Substance: METOPROLOL SUCCINATE
     Route: 065
  7. CANDESARTAN [Concomitant]
     Active Substance: CANDESARTAN
     Dosage: 16 MG QD
     Route: 065

REACTIONS (3)
  - Cough [Unknown]
  - Pneumonia [Unknown]
  - Muscle haemorrhage [Recovered/Resolved]

NARRATIVE: CASE EVENT DATE: 20160118
